FAERS Safety Report 19925909 (Version 2)
Quarter: 2022Q1

REPORT INFORMATION
  Report Type: Spontaneous
  Country: US (occurrence: US)
  Receive Date: 20211006
  Receipt Date: 20220117
  Transmission Date: 20220423
  Serious: No
  Sender: FDA-Public Use
  Company Number: US-BIODELIVERY SCIENCES INTERNATIONAL-2021BDSI0329

PATIENT
  Age: 51 Year
  Sex: Female
  Weight: 113.50 kg

DRUGS (11)
  1. BUPRENORPHINE [Suspect]
     Active Substance: BUPRENORPHINE
     Indication: Pain
     Route: 002
     Dates: start: 202001, end: 202003
  2. BUPRENORPHINE [Suspect]
     Active Substance: BUPRENORPHINE
     Route: 002
     Dates: start: 202003, end: 202005
  3. BUPRENORPHINE [Suspect]
     Active Substance: BUPRENORPHINE
     Route: 002
     Dates: start: 202005, end: 202007
  4. BUPRENORPHINE [Suspect]
     Active Substance: BUPRENORPHINE
     Route: 002
     Dates: start: 202007, end: 202009
  5. BUPRENORPHINE [Suspect]
     Active Substance: BUPRENORPHINE
     Route: 002
     Dates: start: 202009, end: 202011
  6. BUPRENORPHINE [Suspect]
     Active Substance: BUPRENORPHINE
     Route: 002
     Dates: start: 202011, end: 202104
  7. BUPRENORPHINE [Suspect]
     Active Substance: BUPRENORPHINE
     Route: 002
     Dates: start: 202104, end: 202105
  8. BUPRENORPHINE [Suspect]
     Active Substance: BUPRENORPHINE
     Route: 002
     Dates: start: 202105, end: 202108
  9. BUPRENORPHINE [Suspect]
     Active Substance: BUPRENORPHINE
     Route: 002
     Dates: start: 202108
  10. OXYCODONE [Concomitant]
     Active Substance: OXYCODONE
     Indication: Breakthrough pain
     Route: 065
  11. OXYCODONE [Concomitant]
     Active Substance: OXYCODONE
     Route: 065

REACTIONS (3)
  - Therapeutic response decreased [Unknown]
  - Product adhesion issue [Unknown]
  - Wrong technique in product usage process [Unknown]

NARRATIVE: CASE EVENT DATE: 20210101
